FAERS Safety Report 10530402 (Version 2)
Quarter: 2014Q4

REPORT INFORMATION
  Report Type: Spontaneous
  Country: BR (occurrence: BR)
  Receive Date: 20141021
  Receipt Date: 20141024
  Transmission Date: 20150528
  Serious: Yes (Other)
  Sender: FDA-Public Use
  Company Number: BR-SA-2014SA024834

PATIENT
  Age: 26 Year
  Sex: Female
  Weight: 74 kg

DRUGS (2)
  1. CLEXANE [Suspect]
     Active Substance: ENOXAPARIN SODIUM
     Indication: HYPERCOAGULATION
     Dosage: 40 MG SYRINGES
     Route: 058
     Dates: start: 20140214
  2. ACETYLSALICYLIC ACID [Concomitant]
     Active Substance: ASPIRIN
     Indication: ARTERIAL DISORDER
     Dosage: 1 TABLET AFTER LUNCH?STRENGTH: 81 MG
     Dates: start: 20140214, end: 201407

REACTIONS (2)
  - Premature rupture of membranes [Unknown]
  - Prolonged labour [Unknown]
